FAERS Safety Report 6278080-0 (Version None)
Quarter: 2009Q3

REPORT INFORMATION
  Report Type: 
  Country: None (occurrence: None)
  Receive Date: 20090722
  Receipt Date: 20090618
  Transmission Date: 20100115
  Serious: No
  Sender: FDA-Public Use
  Company Number: US-BAYER-200911922BCC

PATIENT
  Age: 70 Year
  Sex: Female

DRUGS (1)
  1. FINACEA [Suspect]
     Indication: ROSACEA
     Dosage: APPLIES 1-2 TIMES A DAY TO CHEEKS AND NOSE
     Route: 061
     Dates: start: 20090501

REACTIONS (3)
  - CHAPPED LIPS [None]
  - LIP DRY [None]
  - ORAL HERPES [None]
